FAERS Safety Report 14995798 (Version 1)
Quarter: 2018Q2

REPORT INFORMATION
  Report Type: Spontaneous
  Country: DE (occurrence: DE)
  Receive Date: 20180611
  Receipt Date: 20180611
  Transmission Date: 20180711
  Serious: Yes (Other)
  Sender: FDA-Public Use
  Company Number: DE-PFIZER INC-2018233129

PATIENT

DRUGS (1)
  1. MORPHINE SULFATE. [Suspect]
     Active Substance: MORPHINE SULFATE
     Dosage: NEARLY TWO GRAMS, TAKEN BY THE MOUTH IN COFFEE OVERNIGHT
     Route: 048

REACTIONS (2)
  - Cyanosis [Recovering/Resolving]
  - Toxicity to various agents [Unknown]
